FAERS Safety Report 6336137-X (Version None)
Quarter: 2009Q3

REPORT INFORMATION
  Report Type: 
  Country: None (occurrence: None)
  Receive Date: 20090901
  Receipt Date: 20070515
  Transmission Date: 20100115
  Serious: Yes (Hospitalization)
  Sender: FDA-Public Use
  Company Number: US-ASTRAZENECA-2006UW11101

PATIENT
  Age: 49 Year
  Sex: Female
  Weight: 158.8 kg

DRUGS (26)
  1. SEROQUEL [Suspect]
     Indication: ANXIETY
     Route: 048
     Dates: start: 20040101
  2. SEROQUEL [Suspect]
     Indication: BIPOLAR DISORDER
     Route: 048
     Dates: start: 20040101
  3. SEROQUEL [Suspect]
     Indication: DEPRESSION
     Route: 048
     Dates: start: 20040101
  4. SEROQUEL [Suspect]
     Indication: SLEEP DISORDER
     Route: 048
     Dates: start: 20040101
  5. SEROQUEL [Suspect]
     Dosage: 25 MG TO 600 MG
     Route: 048
     Dates: start: 20041203
  6. SEROQUEL [Suspect]
     Dosage: 25 MG TO 600 MG
     Route: 048
     Dates: start: 20041203
  7. SEROQUEL [Suspect]
     Dosage: 25 MG TO 600 MG
     Route: 048
     Dates: start: 20041203
  8. SEROQUEL [Suspect]
     Dosage: 25 MG TO 600 MG
     Route: 048
     Dates: start: 20041203
  9. RISPERDAL [Concomitant]
  10. UNKNOWN PSYCHIATRIC MEDICATION [Concomitant]
  11. PRILOSEC [Concomitant]
     Route: 048
     Dates: start: 19970731
  12. PAXIL [Concomitant]
     Route: 048
     Dates: start: 19970731
  13. CARDIZEM [Concomitant]
     Route: 048
     Dates: start: 20050818
  14. LEXAPRO [Concomitant]
     Route: 048
     Dates: start: 20050818
  15. GABITRIL [Concomitant]
     Route: 048
     Dates: start: 20050818
  16. TOPAMAX [Concomitant]
     Indication: AFFECTIVE DISORDER
     Dosage: 100 MG, 2 TABLET TWO TIMES A DAY
     Route: 048
     Dates: start: 20050818
  17. ATIVAN [Concomitant]
     Indication: ANXIETY
     Route: 048
     Dates: start: 20050818
  18. PREVACID [Concomitant]
     Route: 048
     Dates: start: 20050818
  19. LISINOPRIL [Concomitant]
     Route: 048
     Dates: start: 20050818
  20. SINGULAIR [Concomitant]
     Route: 048
     Dates: start: 20050818
  21. LAMICTAL [Concomitant]
     Indication: AFFECTIVE DISORDER
     Route: 048
     Dates: start: 20071005
  22. DEMADEX [Concomitant]
     Route: 048
     Dates: start: 19970713
  23. GEODON [Concomitant]
     Dosage: 80 MG DISPENSED
     Route: 048
     Dates: start: 20041203
  24. PREDNISONE [Concomitant]
     Dosage: 10 MG DISPENCED
     Route: 048
     Dates: start: 20041210
  25. ASPIRIN [Concomitant]
     Route: 048
     Dates: start: 20050322
  26. CELEXA [Concomitant]
     Route: 048
     Dates: start: 20070109

REACTIONS (4)
  - CHRONIC OBSTRUCTIVE PULMONARY DISEASE [None]
  - DIABETES MELLITUS [None]
  - PNEUMONIA [None]
  - TYPE 2 DIABETES MELLITUS [None]
